FAERS Safety Report 6519835-4 (Version None)
Quarter: 2009Q4

REPORT INFORMATION
  Report Type: 
  Country: None (occurrence: None)
  Receive Date: 20091228
  Receipt Date: 20091228
  Transmission Date: 20100525
  Serious: Yes (Other)
  Sender: FDA-Public Use
  Company Number: None

PATIENT
  Sex: Female

DRUGS (2)
  1. WELLBUTRIN XL [Suspect]
     Dosage: START GENERIC THEN TRADE NAME
     Dates: start: 20091027
  2. WELLBUTRIN XL [Suspect]
     Dosage: START GENERIC THEN TRADE NAME
     Dates: start: 20091201

REACTIONS (2)
  - CONDITION AGGRAVATED [None]
  - PRODUCT SUBSTITUTION ISSUE [None]
